FAERS Safety Report 8849287 (Version 4)
Quarter: 2014Q1

REPORT INFORMATION
  Report Type: Spontaneous
  Country: US (occurrence: None)
  Receive Date: 20120426
  Receipt Date: 20130107
  Transmission Date: 20141002
  Serious: Yes (Other)
  Sender: FDA-Public Use
  Company Number: PHEH2012US004311

PATIENT
  Age: 50 Year
  Sex: Female
  Weight: 56.7 kg

DRUGS (8)
  1. GILENYA [Suspect]
     Indication: MULTIPLE SCLEROSIS
     Route: 048
     Dates: start: 20111122
  2. ZOLOFT (SERTRALINE HYDROCHLORIDE) [Concomitant]
  3. CLONAZEPAM (CLONAZEPAM) [Concomitant]
  4. METHYLPHENIDATE (METHYLPHENIDATE) [Concomitant]
  5. VITAMIN B12 (CYANOCOBALAMIN) [Concomitant]
  6. FISH OIL (FISH OIL) CAPSULE [Concomitant]
  7. VITAMIN D (ERGOCALCIFEROL) CAPSULE [Concomitant]
  8. VITAMIN B6 (PYRIDOXINE HYDROCHLORIDE) [Concomitant]

REACTIONS (5)
  - Urine odour abnormal [None]
  - Urinary tract infection [None]
  - White blood cell count decreased [None]
  - Liver function test abnormal [None]
  - Lymphocyte count decreased [None]
